FAERS Safety Report 5524935-1 (Version None)
Quarter: 2007Q4

REPORT INFORMATION
  Report Type: 
  Country: None (occurrence: None)
  Receive Date: 20071126
  Receipt Date: 20071112
  Transmission Date: 20080405
  Serious: Yes (Disabling)
  Sender: FDA-Public Use
  Company Number: DE-JNJFOC-20071104590

PATIENT
  Age: 47 Year
  Sex: Male

DRUGS (4)
  1. TAVANIC [Suspect]
     Indication: PROSTATITIS
     Route: 048
     Dates: start: 20071005, end: 20071011
  2. VOLTAREN [Concomitant]
     Indication: MUSCULOSKELETAL DISCOMFORT
     Route: 065
  3. CORTISONE ACETATE [Concomitant]
     Indication: MUSCULOSKELETAL DISCOMFORT
     Route: 065
  4. CIPRO [Concomitant]
     Route: 065

REACTIONS (3)
  - ARTHROPATHY [None]
  - MUSCLE SPASMS [None]
  - TENDON DISORDER [None]
